FAERS Safety Report 5732035-0 (Version None)
Quarter: 2008Q2

REPORT INFORMATION
  Report Type: 
  Country: None (occurrence: None)
  Receive Date: 20080506
  Receipt Date: 20080422
  Transmission Date: 20081010
  Serious: Yes (Other)
  Sender: FDA-Public Use
  Company Number: 430035M07USA

PATIENT
  Age: 74 Year
  Sex: Male

DRUGS (6)
  1. NOVANTRONE [Suspect]
     Indication: MULTIPLE SCLEROSIS
     Dates: start: 20000310, end: 20000922
  2. ABIRATERONE ACETATE (ALL OTHER THERAPEUTIC PRODUCTS) [Suspect]
     Indication: PROSTATE CANCER
     Dosage: 1000 MG, 1 IN 1 DAYS, ORAL
     Route: 048
     Dates: start: 20070307, end: 20071010
  3. ZOLADEX [Concomitant]
  4. ASPIRIN [Concomitant]
  5. EPLERENONE [Concomitant]
  6. DEXAMETHASONE TAB [Concomitant]

REACTIONS (6)
  - DILATATION VENTRICULAR [None]
  - DYSPNOEA EXERTIONAL [None]
  - EJECTION FRACTION DECREASED [None]
  - FLUID OVERLOAD [None]
  - HAEMOGLOBIN DECREASED [None]
  - OEDEMA [None]
